FAERS Safety Report 6987753-3 (Version None)
Quarter: 2010Q3

REPORT INFORMATION
  Report Type: 
  Country: None (occurrence: None)
  Receive Date: 20100916
  Receipt Date: 20100907
  Transmission Date: 20110219
  Serious: Yes (Hospitalization)
  Sender: FDA-Public Use
  Company Number: NL-ASTRAZENECA-2010SE42134

PATIENT
  Age: 20901 Day
  Sex: Female
  Weight: 57 kg

DRUGS (8)
  1. CRESTOR [Suspect]
     Route: 048
     Dates: start: 20040101, end: 20100827
  2. METFORMIN HCL [Suspect]
     Route: 048
     Dates: start: 20090101, end: 20100820
  3. HUMIRA [Suspect]
     Indication: RHEUMATOID ARTHRITIS
     Route: 058
     Dates: start: 20100317, end: 20100809
  4. NEXIUM [Concomitant]
     Route: 048
     Dates: start: 20100810
  5. CALCI CHEW D3 [Concomitant]
     Dosage: 500 MG/400 IE 1 DF DAILY
     Route: 048
     Dates: start: 20100810
  6. IRBESARTAN [Concomitant]
     Route: 048
     Dates: start: 20060101
  7. CLARITROMYCINE [Concomitant]
     Route: 048
     Dates: start: 20100827
  8. ACTONEL [Concomitant]
     Route: 048
     Dates: start: 20100809

REACTIONS (1)
  - ALVEOLITIS ALLERGIC [None]
